FAERS Safety Report 11440957 (Version 1)
Quarter: 2015Q3

REPORT INFORMATION
  Report Type: Spontaneous
  Country: US (occurrence: US)
  Receive Date: 20150821
  Receipt Date: 20150821
  Transmission Date: 20151125
  Serious: No
  Sender: FDA-Public Use
  Company Number: US-ELI_LILLY_AND_COMPANY-US200711006643

PATIENT
  Sex: Female

DRUGS (4)
  1. FUROSEMIDE. [Concomitant]
     Active Substance: FUROSEMIDE
  2. CARDIZEM - SLOW RELEASE [Concomitant]
     Indication: BLOOD PRESSURE MEASUREMENT
     Dosage: 90 MG, UNK
  3. CYMBALTA [Suspect]
     Active Substance: DULOXETINE HYDROCHLORIDE
     Indication: PARAESTHESIA
     Dosage: 60 MG, DAILY (1/D)
     Dates: start: 200605
  4. VITAMINS [Concomitant]
     Active Substance: VITAMINS

REACTIONS (6)
  - Fall [Unknown]
  - Insomnia [Not Recovered/Not Resolved]
  - Anxiety [Not Recovered/Not Resolved]
  - Joint swelling [Not Recovered/Not Resolved]
  - Hallucination [Not Recovered/Not Resolved]
  - Panic attack [Not Recovered/Not Resolved]

NARRATIVE: CASE EVENT DATE: 2007
